FAERS Safety Report 16600009 (Version 5)
Quarter: 2019Q4

REPORT INFORMATION
  Report Type: Report from Study
  Country: None (occurrence: IT)
  Receive Date: 20190719
  Receipt Date: 20191220
  Transmission Date: 20200122
  Serious: Yes (Death, Hospitalization)
  Sender: FDA-Public Use
  Company Number: IT-ABBVIE-19P-083-2860525-00

PATIENT
  Age: 75 Year
  Sex: Male
  Weight: 60 kg

DRUGS (3)
  1. DUODOPA [Suspect]
     Active Substance: CARBIDOPA\LEVODOPA
     Indication: PARKINSON^S DISEASE
     Dosage: TITRATION: MD: 9.5 ML; CD: 2.8ML/L; ED:3ML
     Route: 050
     Dates: start: 20161202
  2. CARDIOASPIRIN [Concomitant]
     Active Substance: ASPIRIN
     Indication: DISEASE RISK FACTOR
     Route: 048
     Dates: start: 20160606, end: 20190629
  3. SINEMET RM [Concomitant]
     Indication: PARKINSON^S DISEASE
     Dosage: 100/50MG
     Route: 048
     Dates: start: 20171207, end: 20190629

REACTIONS (1)
  - Pneumonia aspiration [Fatal]

NARRATIVE: CASE EVENT DATE: 20190608
